FAERS Safety Report 18455327 (Version 1)
Quarter: 2020Q4

REPORT INFORMATION
  Report Type: Spontaneous
  Country: US (occurrence: US)
  Receive Date: 20201103
  Receipt Date: 20201103
  Transmission Date: 20210114
  Serious: Yes (Other)
  Sender: FDA-Public Use
  Company Number: US-AMGEN-USASP2020174696

PATIENT
  Age: 41 Year
  Sex: Female

DRUGS (2)
  1. BLINCYTO [Suspect]
     Active Substance: BLINATUMOMAB
     Indication: ACUTE LYMPHOCYTIC LEUKAEMIA
     Dosage: 9 MICROGRAM, QD
     Route: 065
     Dates: start: 20200929, end: 20201018
  2. BLINCYTO [Suspect]
     Active Substance: BLINATUMOMAB
     Dosage: 9 MICROGRAM, QD
     Route: 065
     Dates: start: 20201018, end: 20201023

REACTIONS (5)
  - Dysgraphia [Unknown]
  - Tremor [Unknown]
  - Pancreatitis [Unknown]
  - Hypotension [Unknown]
  - Neurotoxicity [Unknown]

NARRATIVE: CASE EVENT DATE: 202010
